FAERS Safety Report 10700619 (Version 1)
Quarter: 2014Q4

REPORT INFORMATION
  Report Type: Spontaneous
  Country: US (occurrence: None)
  Receive Date: 20141224
  Receipt Date: 20141224
  Transmission Date: 20150529
  Serious: Yes (Hospitalization, Other)
  Sender: FDA-Public Use
  Company Number: 1000060258

PATIENT
  Age: 45 Year
  Sex: Female
  Weight: 51 kg

DRUGS (15)
  1. TEFLARO [Suspect]
     Active Substance: CEFTAROLINE FOSAMIL
     Indication: STAPHYLOCOCCAL INFECTION
     Dosage: 1200 MG (600 MG, 1 IN 12 HR), INTRAVENOUS (NOT OTHERWISE SPECIFIED)
     Route: 042
     Dates: start: 20130808, end: 20130908
  2. LEVOTHYROXIN (LEVOTHYROXINE SODIUM) (LEVITHYROXINE) [Concomitant]
  3. CYMBALTA (DULOXETINE HYDROCHLORRIDE) (DULOXETINE HYDROCHLORIDE) [Concomitant]
  4. TEFLARO [Suspect]
     Active Substance: CEFTAROLINE FOSAMIL
     Indication: ENDOCARDITIS BACTERIAL
     Dosage: 1200 MG (600 MG, 1 IN 12 HR), INTRAVENOUS (NOT OTHERWISE SPECIFIED)
     Route: 042
     Dates: start: 20130808, end: 20130908
  5. PEPCID (FAMOTIDINE) (FAMOTIDINE) [Concomitant]
  6. HEPARIN (HEPARIN) (HEPARIN) [Concomitant]
  7. MS CONTIN (MORPHINE SULFATE) (MORPHINE SULFATE) [Concomitant]
  8. MULTIVITAMIN NOS (MULTIVITAMIN) [Concomitant]
  9. NICODERM (NICOTINE) (NICOTINE) [Concomitant]
  10. NYSTATIN (NYSTATIN) (NYSTATIN) [Concomitant]
  11. FOLIC ACID (FOLIC ACID) (FOLIC ACID) [Concomitant]
     Active Substance: FOLIC ACID
  12. SENNA (SENNA) (SENNA) [Concomitant]
  13. COLACE (DOCUSATE SODIUM) (DOCUSATE SODIUM) [Concomitant]
  14. NORTRIPTYLINE (NORTRIPTYLINE) (NORTRIPTYLINE) [Concomitant]
  15. LACTULOSE (LACTULOSE) (LACTULOSE) [Concomitant]

REACTIONS (2)
  - Off label use [None]
  - Neutropenia [None]

NARRATIVE: CASE EVENT DATE: 20130808
